FAERS Safety Report 22346373 (Version 1)
Quarter: 2023Q2

REPORT INFORMATION
  Report Type: Spontaneous
  Country: CA (occurrence: CA)
  Receive Date: 20230519
  Receipt Date: 20230519
  Transmission Date: 20230721
  Serious: Yes (Hospitalization)
  Sender: FDA-Public Use
  Company Number: CA-HLS-202301268

PATIENT
  Age: 17 Year
  Sex: Male

DRUGS (14)
  1. CLONAZEPAM [Suspect]
     Active Substance: CLONAZEPAM
     Indication: Product used for unknown indication
     Dosage: 1 EVERY 1 DAYS?AMOUNT: 1.5 MILLIGRAM?TABLETS DOSAGE FORM
     Route: 048
  2. CLONAZEPAM [Suspect]
     Active Substance: CLONAZEPAM
     Indication: Product used for unknown indication
     Dosage: TABLET
     Route: 065
  3. CLOZAPINE [Suspect]
     Active Substance: CLOZAPINE
     Indication: Mania
     Dosage: 1 EVERY 1 DAYS?AMOUNT: 200 MILLIGRAM
     Route: 048
  4. CLOZAPINE [Suspect]
     Active Substance: CLOZAPINE
     Indication: Psychotic disorder
     Dosage: 1 EVERY 1 DAYS?AMOUNT: 200 MILLIGRAM
     Route: 048
  5. CLOZAPINE [Suspect]
     Active Substance: CLOZAPINE
     Indication: Mania
     Dosage: 1 EVERY 1 DAYS?AMOUNT: 500 MILLIGRAM?TABLETS DOSAGE FORM
     Route: 048
  6. CLOZAPINE [Suspect]
     Active Substance: CLOZAPINE
     Indication: Psychotic disorder
     Dosage: 1 EVERY 1 DAYS?AMOUNT: 500 MILLIGRAM?TABLETS DOSAGE FORM
     Route: 048
  7. GUANFACINE HYDROCHLORIDE [Concomitant]
     Active Substance: GUANFACINE HYDROCHLORIDE
     Indication: Attention deficit hyperactivity disorder
     Route: 065
  8. LITHIUM [Suspect]
     Active Substance: LITHIUM
     Indication: Mania
     Route: 065
  9. LITHIUM [Suspect]
     Active Substance: LITHIUM
     Indication: Psychotic disorder
     Route: 065
  10. RISPERIDONE [Suspect]
     Active Substance: RISPERIDONE
     Indication: Mania
     Route: 065
  11. RISPERIDONE [Suspect]
     Active Substance: RISPERIDONE
     Indication: Psychotic disorder
     Route: 065
  12. RISPERIDONE [Suspect]
     Active Substance: RISPERIDONE
     Indication: Mania
     Dosage: NOT SPECIFIED DOSAGE FORM
     Route: 065
  13. RISPERIDONE [Suspect]
     Active Substance: RISPERIDONE
     Indication: Psychotic disorder
     Dosage: NOT SPECIFIED DOSAGE FORM
     Route: 065
  14. DIVALPROEX SODIUM [Concomitant]
     Active Substance: DIVALPROEX SODIUM
     Dosage: 2 EVERY 1 DAYS?AMOUNT: 500 MILLIGRAM?NOT SPECIFIED DOSAGE FORM
     Route: 048

REACTIONS (5)
  - Drug ineffective [Recovered/Resolved]
  - Neutropenia [Recovered/Resolved]
  - Off label use [Unknown]
  - Product use issue [Recovered/Resolved]
  - White blood cell count decreased [Recovered/Resolved]
